FAERS Safety Report 25837648 (Version 3)
Quarter: 2025Q3

REPORT INFORMATION
  Report Type: Spontaneous
  Country: US (occurrence: US)
  Receive Date: 20250923
  Receipt Date: 20250930
  Transmission Date: 20251020
  Serious: Yes (Hospitalization, Other)
  Sender: NOVO NORDISK
  Company Number: US-NOVOPROD-1523462

PATIENT
  Age: 75 Year
  Sex: Female

DRUGS (4)
  1. OZEMPIC [Suspect]
     Active Substance: SEMAGLUTIDE
     Indication: Type 2 diabetes mellitus
     Route: 058
     Dates: start: 2022
  2. OZEMPIC [Suspect]
     Active Substance: SEMAGLUTIDE
     Dosage: 0.5 MG, QW
     Route: 058
     Dates: start: 202508
  3. OZEMPIC [Suspect]
     Active Substance: SEMAGLUTIDE
     Dosage: 0.25 MG, QW(RESTARTED)
     Dates: start: 20250722, end: 20250812
  4. OZEMPIC [Suspect]
     Active Substance: SEMAGLUTIDE
     Dosage: 0.5 MG, QW(DISCONTINUED)
     Route: 058
     Dates: start: 202205, end: 202505

REACTIONS (19)
  - Glaucoma [Not Recovered/Not Resolved]
  - Cardiac operation [Recovered/Resolved]
  - Cerebrovascular accident [Recovered/Resolved]
  - Pneumonia viral [Unknown]
  - Pneumonia bacterial [Unknown]
  - Oropharyngeal surgery [Unknown]
  - Arterial injury [Unknown]
  - Arrhythmia [Unknown]
  - Left atrial appendage closure implant [Not Recovered/Not Resolved]
  - Cardiac ablation [Not Recovered/Not Resolved]
  - Arterial occlusive disease [Not Recovered/Not Resolved]
  - Thyroid disorder [Not Recovered/Not Resolved]
  - Skin abrasion [Unknown]
  - Malaise [Unknown]
  - Asthenia [Unknown]
  - Blood glucose increased [Recovered/Resolved]
  - Speech disorder [Unknown]
  - Dyspnoea [Not Recovered/Not Resolved]
  - Off label use [Unknown]

NARRATIVE: CASE EVENT DATE: 20240101
